FAERS Safety Report 4506179-5 (Version None)
Quarter: 2004Q4

REPORT INFORMATION
  Report Type: 
  Country: None (occurrence: None)
  Receive Date: 20041025
  Receipt Date: 20030916
  Transmission Date: 20050328
  Serious: Yes (Hospitalization, Disabling)
  Sender: FDA-Public Use
  Company Number: US-JNJFOC-20030701313

PATIENT
  Age: 67 Year
  Sex: Female
  Weight: 47.1741 kg

DRUGS (6)
  1. REMICADE [Suspect]
     Indication: CROHN'S DISEASE
     Dosage: 250 MG, 1 IN 1 DAY, INTRAVENOUS
     Route: 042
     Dates: start: 20030606, end: 20030606
  2. PREDNISONE [Concomitant]
  3. TYLENOL [Concomitant]
  4. BENADRYL [Concomitant]
  5. SKELAXIN [Concomitant]
  6. PEPCID [Concomitant]

REACTIONS (1)
  - ARTHRALGIA [None]
